FAERS Safety Report 6842277-9 (Version None)
Quarter: 2010Q3

REPORT INFORMATION
  Report Type: 
  Country: None (occurrence: None)
  Receive Date: 20100714
  Receipt Date: 20070725
  Transmission Date: 20110219
  Serious: No
  Sender: FDA-Public Use
  Company Number: US-PFIZER INC-2007063075

PATIENT
  Sex: Female
  Weight: 61.363 kg

DRUGS (8)
  1. CHANTIX [Suspect]
     Indication: SMOKING CESSATION THERAPY
     Route: 048
     Dates: start: 20070723
  2. AMBIEN [Concomitant]
  3. PROTONIX [Concomitant]
  4. PREMPRO [Concomitant]
  5. SYNTHROID [Concomitant]
  6. EFFEXOR [Concomitant]
  7. METFORMIN/PIOGLITAZONE [Concomitant]
  8. CARDIOVASCULAR SYSTEM DRUGS [Concomitant]
     Indication: BLOOD PRESSURE ABNORMAL

REACTIONS (1)
  - SLEEP DISORDER [None]
